FAERS Safety Report 16379332 (Version 2)
Quarter: 2019Q3

REPORT INFORMATION
  Report Type: Spontaneous
  Country: JP (occurrence: JP)
  Receive Date: 20190531
  Receipt Date: 20190703
  Transmission Date: 20191004
  Serious: Yes (Other)
  Sender: FDA-Public Use
  Company Number: PHJP2019JP005723

PATIENT
  Age: 82 Year
  Sex: Male

DRUGS (5)
  1. VOTRIENT [Suspect]
     Active Substance: PAZOPANIB HYDROCHLORIDE
     Indication: RENAL CELL CARCINOMA RECURRENT
     Dosage: 600 MG, UNK
     Route: 048
     Dates: start: 201611
  2. ZOMETA [Suspect]
     Active Substance: ZOLEDRONIC ACID
     Indication: METASTASES TO BONE
     Dosage: UNK
     Route: 041
     Dates: start: 201701
  3. VOTRIENT [Suspect]
     Active Substance: PAZOPANIB HYDROCHLORIDE
     Dosage: 800 MG, UNK
     Route: 048
     Dates: start: 201612
  4. VOTRIENT [Suspect]
     Active Substance: PAZOPANIB HYDROCHLORIDE
     Dosage: 600 MG, UNK
     Route: 048
     Dates: start: 201703
  5. VOTRIENT [Suspect]
     Active Substance: PAZOPANIB HYDROCHLORIDE
     Dosage: 800 MG, UNK
     Route: 048
     Dates: start: 201701

REACTIONS (4)
  - Metastases to bone [Unknown]
  - Renal cell carcinoma [Unknown]
  - Oropharyngeal pain [Unknown]
  - Malignant neoplasm progression [Unknown]

NARRATIVE: CASE EVENT DATE: 201703
